FAERS Safety Report 8092241-X (Version None)
Quarter: 2012Q1

REPORT INFORMATION
  Report Type: 
  Country: None (occurrence: None)
  Receive Date: 20120125
  Receipt Date: 20120109
  Transmission Date: 20120608
  Serious: Yes (Hospitalization, Other)
  Sender: FDA-Public Use
  Company Number: 2011SGN00366

PATIENT
  Age: 50 Year
  Sex: Male

DRUGS (2)
  1. ADCETRIS [Suspect]
     Indication: HODGKIN'S DISEASE
     Dosage: 1.8 MG/KG, Q21D, INTRAVENOUS : 1.2 MG/KG, Q21D
     Route: 042
     Dates: start: 20110914, end: 20111024
  2. ADCETRIS [Suspect]
     Indication: HODGKIN'S DISEASE
     Dosage: 1.8 MG/KG, Q21D, INTRAVENOUS : 1.2 MG/KG, Q21D
     Route: 042
     Dates: start: 20110523, end: 20110815

REACTIONS (10)
  - PROGRESSIVE MULTIFOCAL LEUKOENCEPHALOPATHY [None]
  - MUSCULAR WEAKNESS [None]
  - TUMOUR NECROSIS [None]
  - LYMPHOMA [None]
  - DIZZINESS [None]
  - ACTIVITIES OF DAILY LIVING IMPAIRED [None]
  - CENTRAL NERVOUS SYSTEM LESION [None]
  - HYPOAESTHESIA [None]
  - SPINAL CORD DISORDER [None]
  - NEUROPATHY PERIPHERAL [None]
